FAERS Safety Report 24988693 (Version 3)
Quarter: 2025Q1

REPORT INFORMATION
  Report Type: Spontaneous
  Country: ES (occurrence: ES)
  Receive Date: 20250220
  Receipt Date: 20250227
  Transmission Date: 20250408
  Serious: Yes (Other)
  Sender: ROCHE
  Company Number: ES-ROCHE-10000200648

PATIENT
  Age: 82 Year
  Sex: Female

DRUGS (2)
  1. FARICIMAB [Suspect]
     Active Substance: FARICIMAB
     Indication: Neovascular age-related macular degeneration
     Route: 050
  2. LUCENTIS [Concomitant]
     Active Substance: RANIBIZUMAB

REACTIONS (3)
  - Intraocular pressure increased [Unknown]
  - Blindness [Unknown]
  - Uveitis [Unknown]
